FAERS Safety Report 24011817 (Version 1)
Quarter: 2024Q2

REPORT INFORMATION
  Report Type: Report from Study
  Country: SK (occurrence: SK)
  Receive Date: 20240625
  Receipt Date: 20240625
  Transmission Date: 20240716
  Serious: Yes (Other)
  Sender: FDA-Public Use
  Company Number: SK-JNJFOC-20230366918

PATIENT
  Age: 37 Year
  Sex: Male

DRUGS (2)
  1. STELARA [Suspect]
     Active Substance: USTEKINUMAB
     Indication: Psoriasis
     Route: 058
     Dates: start: 20110603, end: 20110603
  2. STELARA [Suspect]
     Active Substance: USTEKINUMAB
     Dosage: THERAPY END DATE- 24/JAN/2020
     Route: 058
     Dates: start: 20120309

REACTIONS (1)
  - Drug-induced liver injury [Unknown]

NARRATIVE: CASE EVENT DATE: 20120528
